FAERS Safety Report 15180631 (Version 4)
Quarter: 2018Q3

REPORT INFORMATION
  Report Type: Spontaneous
  Country: KR (occurrence: KR)
  Receive Date: 20180723
  Receipt Date: 20180829
  Transmission Date: 20181010
  Serious: Yes (Hospitalization, Other)
  Sender: FDA-Public Use
  Company Number: PHHY2018KR051242

PATIENT
  Sex: Male

DRUGS (2)
  1. EXELON PATCH [Suspect]
     Active Substance: RIVASTIGMINE
     Indication: PARKINSON^S DISEASE
     Dosage: 1 PATCH, QD
     Route: 062
     Dates: start: 20180424, end: 20180430
  2. LOZACAL PLUS F [Concomitant]
     Indication: PRODUCT USED FOR UNKNOWN INDICATION
     Dosage: 0.5 OT, QD
     Route: 048

REACTIONS (15)
  - Hypertension [Not Recovered/Not Resolved]
  - Parkinson^s disease [Not Recovered/Not Resolved]
  - Coma [Not Recovered/Not Resolved]
  - Pneumonia [Not Recovered/Not Resolved]
  - Pseudomembranous colitis [Not Recovered/Not Resolved]
  - Constipation [Not Recovered/Not Resolved]
  - Headache [Unknown]
  - Chest discomfort [Unknown]
  - Nausea [Unknown]
  - Subdural haematoma [Not Recovered/Not Resolved]
  - Seizure [Not Recovered/Not Resolved]
  - Asthenia [Unknown]
  - Traumatic intracranial haemorrhage [Not Recovered/Not Resolved]
  - Loss of consciousness [Unknown]
  - Delirium [Not Recovered/Not Resolved]

NARRATIVE: CASE EVENT DATE: 20180424
